FAERS Safety Report 4638201-X (Version None)
Quarter: 2005Q2

REPORT INFORMATION
  Report Type: 
  Country: None (occurrence: None)
  Receive Date: 20050418
  Receipt Date: 20050324
  Transmission Date: 20051028
  Serious: Yes (Hospitalization, Other)
  Sender: FDA-Public Use
  Company Number: US_0411107842

PATIENT
  Age: 31 Year
  Sex: Male
  Weight: 91 kg

DRUGS (16)
  1. ZYPREXA [Suspect]
     Dosage: 60 MG
     Dates: start: 19980101, end: 20030101
  2. SEROQUEL [Concomitant]
  3. RISPERDAL [Concomitant]
  4. HALDOL (HALOPERIDOL DECANOATE) [Concomitant]
  5. DEPAKOTE [Concomitant]
  6. LITHIUM CARBONATE [Concomitant]
  7. PAXIL [Concomitant]
  8. GLYBURIDE [Concomitant]
  9. METFORMIN HCL [Concomitant]
  10. INSULIN [Concomitant]
  11. ACCURETIC [Concomitant]
  12. MIRTAZAPINE [Concomitant]
  13. LISINOPRIL [Concomitant]
  14. VALSARTAN [Concomitant]
  15. QUINAPRIL [Concomitant]
  16. HYDROCHLOROTHIAZIDE/TRIAMETERENE [Concomitant]

REACTIONS (25)
  - ALANINE AMINOTRANSFERASE INCREASED [None]
  - ARRHYTHMIA [None]
  - BLOOD ALKALINE PHOSPHATASE INCREASED [None]
  - CHEST PAIN [None]
  - CONDITION AGGRAVATED [None]
  - DIABETES MELLITUS [None]
  - DIABETIC KETOACIDOSIS [None]
  - DIABETIC NEPHROPATHY [None]
  - ESSENTIAL HYPERTENSION [None]
  - GLYCOSURIA [None]
  - HAEMATEMESIS [None]
  - HALLUCINATION, AUDITORY [None]
  - HYPERTENSION [None]
  - INSOMNIA [None]
  - JOINT SWELLING [None]
  - LABYRINTHITIS [None]
  - METABOLIC ACIDOSIS [None]
  - OBESITY [None]
  - PROTEINURIA [None]
  - RENAL FAILURE [None]
  - TACHYCARDIA [None]
  - ULCER HAEMORRHAGE [None]
  - VISION BLURRED [None]
  - WEIGHT DECREASED [None]
  - WHITE BLOOD CELL COUNT INCREASED [None]
